FAERS Safety Report 5418684-8 (Version None)
Quarter: 2007Q3

REPORT INFORMATION
  Report Type: 
  Country: None (occurrence: None)
  Receive Date: 20070817
  Receipt Date: 20070807
  Transmission Date: 20080115
  Serious: Yes (Other)
  Sender: FDA-Public Use
  Company Number: NL-PFIZER INC-2007018173

PATIENT
  Sex: Male

DRUGS (1)
  1. PREGABALIN [Suspect]
     Indication: PAIN IN EXTREMITY
     Route: 048
     Dates: start: 20060810, end: 20060915

REACTIONS (4)
  - HERPES ZOSTER [None]
  - MUSCULOSKELETAL STIFFNESS [None]
  - OPTIC NEUROPATHY [None]
  - VISUAL FIELD DEFECT [None]
